FAERS Safety Report 8937975 (Version 2)
Quarter: 2012Q4

REPORT INFORMATION
  Report Type: 
  Country: FR (occurrence: FR)
  Receive Date: 20121130
  Receipt Date: 20121206
  Transmission Date: 20130627
  Serious: Yes (Hospitalization)
  Sender: FDA-Public Use
  Company Number: FR-ABBOTT-12P-056-0998770-00

PATIENT
  Age: 80 None
  Sex: Male
  Weight: 61 kg

DRUGS (2)
  1. HUMIRA [Suspect]
     Indication: CROHN^S DISEASE
     Dates: start: 200811
  2. HUMIRA [Suspect]
     Dates: start: 200903

REACTIONS (22)
  - Malaise [Recovering/Resolving]
  - Crohn^s disease [Recovered/Resolved]
  - Colonic stenosis [Recovered/Resolved]
  - Large intestinal ulcer [Recovered/Resolved]
  - Frequent bowel movements [Recovered/Resolved]
  - Abdominal pain upper [Recovered/Resolved]
  - Pyrexia [Recovered/Resolved]
  - Vomiting [Unknown]
  - Crohn^s disease [Unknown]
  - Food intolerance [Unknown]
  - Crohn^s disease [Unknown]
  - Chest pain [Unknown]
  - Drug intolerance [Recovered/Resolved]
  - Pain in extremity [Unknown]
  - Pain in extremity [Unknown]
  - Paraesthesia [Unknown]
  - Nerve compression [Unknown]
  - Mobility decreased [Unknown]
  - Unevaluable event [Unknown]
  - Abdominal pain [Unknown]
  - Clostridium difficile infection [Unknown]
  - Unevaluable event [Unknown]
